FAERS Safety Report 14074833 (Version 1)
Quarter: 2017Q4

REPORT INFORMATION
  Report Type: Report from Study
  Country: BR (occurrence: BR)
  Receive Date: 20171011
  Receipt Date: 20171011
  Transmission Date: 20180321
  Serious: Yes (Hospitalization)
  Sender: FDA-Public Use
  Company Number: PHHY2017BR147004

PATIENT
  Sex: Female
  Weight: 67 kg

DRUGS (1)
  1. EXJADE [Suspect]
     Active Substance: DEFERASIROX
     Indication: IRON OVERLOAD
     Dosage: 1 DF, QD
     Route: 048
     Dates: start: 2013

REACTIONS (4)
  - Infected skin ulcer [Recovering/Resolving]
  - Pain [Recovering/Resolving]
  - Insomnia [Recovering/Resolving]
  - Wound [Unknown]

NARRATIVE: CASE EVENT DATE: 2014
